FAERS Safety Report 19527121 (Version 2)
Quarter: 2021Q3

REPORT INFORMATION
  Report Type: Spontaneous
  Country: US (occurrence: US)
  Receive Date: 20210713
  Receipt Date: 20210825
  Transmission Date: 20211014
  Serious: No
  Sender: FDA-Public Use
  Company Number: US-MYLANLABS-2021M1036036

PATIENT
  Sex: Female
  Weight: 82 kg

DRUGS (5)
  1. KETOROLAC [Concomitant]
     Active Substance: KETOROLAC TROMETHAMINE
     Dosage: UNK
  2. PREDNISOLONE                       /00016202/ [Concomitant]
     Active Substance: PREDNISOLONE
     Dosage: UNK
  3. MOXIFLOXACIN OPHTHALMIC SOLUTION USP [Suspect]
     Active Substance: MOXIFLOXACIN
     Dosage: 1 DROP, QD (ONE TIMES A DAY FOR WEEK 3)
     Route: 047
  4. MOXIFLOXACIN OPHTHALMIC SOLUTION USP [Suspect]
     Active Substance: MOXIFLOXACIN
     Indication: CATARACT OPERATION
     Dosage: 1 DROP, TID, (3 TIMES A DAYS FOR WEEK 1)
     Route: 047
     Dates: start: 20210525, end: 20210629
  5. MOXIFLOXACIN OPHTHALMIC SOLUTION USP [Suspect]
     Active Substance: MOXIFLOXACIN
     Dosage: 1 DROP, BID, (2 TIMES A DAY FOR WEEK 2)
     Route: 047

REACTIONS (2)
  - Product tampering [Unknown]
  - Off label use [Not Recovered/Not Resolved]
